FAERS Safety Report 22153660 (Version 2)
Quarter: 2023Q2

REPORT INFORMATION
  Report Type: Spontaneous
  Country: FR (occurrence: FR)
  Receive Date: 20230330
  Receipt Date: 20230615
  Transmission Date: 20230722
  Serious: Yes (Hospitalization)
  Sender: FDA-Public Use
  Company Number: FR-JNJFOC-20230362252

PATIENT
  Age: 20 Year
  Sex: Female
  Weight: 58 kg

DRUGS (5)
  1. SPRAVATO [Suspect]
     Active Substance: ESKETAMINE
     Indication: Depression
     Dates: start: 20230214
  2. SPRAVATO [Suspect]
     Active Substance: ESKETAMINE
     Dates: start: 20230323, end: 20230323
  3. PAROXETINE [Concomitant]
     Active Substance: PAROXETINE
     Indication: Depression
     Route: 048
     Dates: start: 20230214
  4. FOLIC ACID [Concomitant]
     Active Substance: FOLIC ACID
     Route: 048
     Dates: start: 2022
  5. QUETIAPINE [Concomitant]
     Active Substance: QUETIAPINE
     Indication: Depression
     Route: 048
     Dates: start: 202301

REACTIONS (4)
  - Suicidal ideation [Recovering/Resolving]
  - Dissociative disorder [Recovered/Resolved]
  - Medication error [Unknown]
  - Accidental overdose [Recovered/Resolved]

NARRATIVE: CASE EVENT DATE: 20230323
